FAERS Safety Report 5100696-5 (Version None)
Quarter: 2006Q3

REPORT INFORMATION
  Report Type: 
  Country: None (occurrence: None)
  Receive Date: 20060906
  Receipt Date: 20060825
  Transmission Date: 20061208
  Serious: Yes (Hospitalization)
  Sender: FDA-Public Use
  Company Number: B0436634A

PATIENT
  Age: 22 Year
  Sex: Female

DRUGS (4)
  1. LITHIUM CARBONATE [Suspect]
     Indication: GENERALISED ANXIETY DISORDER
     Dosage: 900 MG
  2. HALOPERIDOL [Suspect]
     Dosage: 5 MG
  3. OLANZAPINE [Suspect]
     Indication: ANXIETY
     Dosage: 2.5 MG AS REQUIRED
  4. PAROXETINE HYDROCHLORIDE [Concomitant]

REACTIONS (8)
  - ANTIPSYCHOTIC DRUG LEVEL BELOW THERAPEUTIC [None]
  - ANXIETY [None]
  - DRUG INTERACTION [None]
  - EXTRAPYRAMIDAL DISORDER [None]
  - NEUROTOXICITY [None]
  - OCULOGYRATION [None]
  - SELF-MEDICATION [None]
  - THERAPY NON-RESPONDER [None]
